FAERS Safety Report 9185967 (Version 1)
Quarter: 2013Q1

REPORT INFORMATION
  Report Type: Spontaneous
  Country: US (occurrence: US)
  Receive Date: 20130325
  Receipt Date: 20130325
  Transmission Date: 20140127
  Serious: Yes (Other)
  Sender: FDA-Public Use
  Company Number: US-ASTRAZENECA-2013SE17169

PATIENT
  Age: 64 Year
  Sex: Female
  Weight: 72.6 kg

DRUGS (4)
  1. ARIMIDEX [Suspect]
     Indication: BREAST CANCER
     Route: 048
     Dates: start: 201201
  2. FASLODEX [Suspect]
     Indication: BREAST CANCER METASTATIC
     Route: 058
     Dates: start: 201207
  3. ZOMETA [Concomitant]
     Indication: BONE DISORDER
     Dosage: UNKNOWN MONTH
     Route: 042
  4. VITAMIN D AND CALCIUM [Concomitant]
     Indication: BONE DISORDER
     Dosage: NR DAILY
     Route: 048

REACTIONS (7)
  - Brain neoplasm [Unknown]
  - Pain in extremity [Unknown]
  - Pain in extremity [Unknown]
  - Pain in extremity [Unknown]
  - Back pain [Unknown]
  - Pain in extremity [Unknown]
  - Drug dose omission [Unknown]
